FAERS Safety Report 5009951-0 (Version None)
Quarter: 2006Q2

REPORT INFORMATION
  Report Type: 
  Country: None (occurrence: None)
  Receive Date: 20060522
  Receipt Date: 20060512
  Transmission Date: 20061013
  Serious: Yes (Other)
  Sender: FDA-Public Use
  Company Number: 2006000551

PATIENT
  Age: 33 Year
  Sex: Female

DRUGS (4)
  1. ATARAX [Suspect]
     Indication: PAIN
     Dosage: 25 MG (25 MG, 1 IN 1 D), INTRAMUSCULAR
     Route: 030
     Dates: start: 20051208, end: 20051208
  2. SOSEGON (PENTAZOCINE) [Concomitant]
  3. UTEMEC (RITODRINE HYDROCHLORIDE) [Concomitant]
  4. ANHIBA (PARACETAMOL) [Concomitant]

REACTIONS (6)
  - CAESAREAN SECTION [None]
  - DRUG EXPOSURE DURING PREGNANCY [None]
  - FOETAL DISTRESS SYNDROME [None]
  - INJECTION SITE ERYTHEMA [None]
  - PREMATURE LABOUR [None]
  - PREMATURE RUPTURE OF MEMBRANES [None]
